FAERS Safety Report 7571766-7 (Version None)
Quarter: 2011Q2

REPORT INFORMATION
  Report Type: 
  Country: None (occurrence: None)
  Receive Date: 20110624
  Receipt Date: 20110617
  Transmission Date: 20111010
  Serious: Yes (Hospitalization, Other)
  Sender: FDA-Public Use
  Company Number: PL-PFIZER INC-2008024672

PATIENT
  Age: 67 Year
  Sex: Female
  Weight: 55 kg

DRUGS (14)
  1. SPIRONOL [Concomitant]
     Route: 048
     Dates: start: 20071004
  2. CLORANXEN [Concomitant]
     Route: 048
     Dates: start: 20071011
  3. DIGOXIN [Concomitant]
     Route: 048
     Dates: start: 20071004
  4. EPLERENONE [Suspect]
     Dosage: 50 MG, DAILY
     Route: 048
     Dates: start: 20061012, end: 20070703
  5. TRITACE [Concomitant]
     Route: 048
     Dates: start: 20071017
  6. MUCOSOLVAN [Concomitant]
     Route: 048
     Dates: start: 20071005, end: 20071016
  7. FUROSEMIDE [Concomitant]
     Route: 048
     Dates: start: 20071013
  8. FORMOTEROL FUMARATE [Concomitant]
     Route: 048
     Dates: start: 20071017
  9. EPLERENONE [Suspect]
     Dosage: 25 MG, DAILY
     Route: 048
     Dates: start: 20060913, end: 20061011
  10. TORSEMIDE [Concomitant]
     Route: 048
     Dates: start: 20071005
  11. BUDESONIDE [Concomitant]
     Route: 048
     Dates: start: 20071017
  12. MILURIT [Concomitant]
     Route: 048
     Dates: start: 20071017
  13. BISOPROLOL FUMARATE [Concomitant]
     Route: 048
     Dates: start: 20071018
  14. AUGMENTIN '125' [Concomitant]
     Route: 048
     Dates: start: 20071005, end: 20071015

REACTIONS (3)
  - CONDITION AGGRAVATED [None]
  - CARDIAC FAILURE [None]
  - BREAST NEOPLASM [None]
